FAERS Safety Report 20637915 (Version 1)
Quarter: 2022Q1

REPORT INFORMATION
  Report Type: Report from Study
  Country: CN (occurrence: None)
  Receive Date: 20220325
  Receipt Date: 20220325
  Transmission Date: 20220423
  Serious: Yes (Hospitalization)
  Sender: FDA-Public Use
  Company Number: 2022A074003

PATIENT
  Age: 64 Year
  Sex: Male

DRUGS (10)
  1. DURVALUMAB [Suspect]
     Active Substance: DURVALUMAB
     Indication: Oesophageal squamous cell carcinoma
     Dosage: 1500.0 MG
     Route: 042
     Dates: start: 20220111, end: 20220111
  2. DURVALUMAB [Suspect]
     Active Substance: DURVALUMAB
     Indication: Oesophageal squamous cell carcinoma
     Dosage: 1500.0 MG
     Route: 042
     Dates: start: 20220208, end: 20220208
  3. CISPLATIN [Suspect]
     Active Substance: CISPLATIN
     Indication: Oesophageal squamous cell carcinoma
     Dosage: 30.0 MG/M2
     Route: 065
     Dates: start: 20220111, end: 20220111
  4. CISPLATIN [Suspect]
     Active Substance: CISPLATIN
     Indication: Oesophageal squamous cell carcinoma
     Dosage: 30.0 MG/M2
     Route: 065
     Dates: start: 20220119, end: 20220119
  5. CISPLATIN [Suspect]
     Active Substance: CISPLATIN
     Indication: Oesophageal squamous cell carcinoma
     Dosage: 30.0 MG/M2
     Route: 065
     Dates: start: 20220127, end: 20220127
  6. CISPLATIN [Suspect]
     Active Substance: CISPLATIN
     Indication: Oesophageal squamous cell carcinoma
     Dosage: 30.0 MG/M2
     Route: 065
     Dates: start: 20220207, end: 20220207
  7. CAPECITABINE [Suspect]
     Active Substance: CAPECITABINE
     Indication: Oesophageal squamous cell carcinoma
     Dosage: 800.0 MG/M2
     Route: 065
     Dates: start: 20220112, end: 20220204
  8. CAPECITABINE [Suspect]
     Active Substance: CAPECITABINE
     Indication: Oesophageal squamous cell carcinoma
     Dosage: 800.0 MG/M2
     Route: 065
     Dates: start: 20220209, end: 20220223
  9. HUMAN GRANULOCYTE STIMULATING FACTOR INJECTION [Concomitant]
     Indication: White blood cell count
     Dates: start: 20220210, end: 20220210
  10. HUMAN GRANULOCYTE STIMULATING FACTOR INJECTION [Concomitant]
     Indication: White blood cell count
     Dates: start: 20220215, end: 20220215

REACTIONS (1)
  - Myelosuppression [Recovered/Resolved]

NARRATIVE: CASE EVENT DATE: 20220206
